FAERS Safety Report 10742977 (Version 1)
Quarter: 2015Q1

REPORT INFORMATION
  Report Type: Spontaneous
  Country: US (occurrence: US)
  Receive Date: 20150127
  Receipt Date: 20150127
  Transmission Date: 20150721
  Serious: Yes (Other)
  Sender: FDA-Public Use
  Company Number: US-BIOMARINAP-US-2015-105338

PATIENT
  Age: 26 Year
  Sex: Male
  Weight: 25.4 kg

DRUGS (1)
  1. VIMIZIM [Suspect]
     Active Substance: ELOSULFASE ALFA
     Indication: PRODUCT USED FOR UNKNOWN INDICATION
     Dosage: 50 MG, QW
     Route: 042
     Dates: start: 20140923

REACTIONS (3)
  - Infusion related reaction [None]
  - Migraine [None]
  - Asthma [Unknown]

NARRATIVE: CASE EVENT DATE: 20150121
